FAERS Safety Report 21068672 (Version 1)
Quarter: 2022Q3

REPORT INFORMATION
  Report Type: Spontaneous
  Country: US (occurrence: US)
  Receive Date: 20220712
  Receipt Date: 20220712
  Transmission Date: 20221027
  Serious: No
  Sender: FDA-Public Use
  Company Number: US-PFIZER INC-PV202200013168

PATIENT
  Age: 53 Year
  Sex: Male

DRUGS (2)
  1. BENEFIX [Suspect]
     Active Substance: COAGULATION FACTOR IX RECOMBINANT HUMAN\ISOPROPYL ALCOHOL
     Dosage: UNK
  2. COAGULATION FACTOR IX HUMAN [Suspect]
     Active Substance: COAGULATION FACTOR IX HUMAN
     Dosage: UNK

REACTIONS (2)
  - Swollen tongue [Unknown]
  - Glossodynia [Unknown]
